FAERS Safety Report 14352964 (Version 4)
Quarter: 2018Q1

REPORT INFORMATION
  Report Type: Report from Study
  Country: US (occurrence: US)
  Receive Date: 20180104
  Receipt Date: 20180109
  Transmission Date: 20180509
  Serious: Yes (Other)
  Sender: FDA-Public Use
  Company Number: US-AMGEN-USASP2017192850

PATIENT
  Sex: Female

DRUGS (2)
  1. ENBREL [Suspect]
     Active Substance: ETANERCEPT
     Indication: ANKYLOSING SPONDYLITIS
     Dosage: 50 MG, QWK
     Route: 065
  2. FOSTEUM [Concomitant]
     Active Substance: CHOLECALCIFEROL\GENISTEIN\ZINC GLYCINATE
     Dosage: UNK

REACTIONS (7)
  - Pain in extremity [Unknown]
  - Decreased appetite [Unknown]
  - Laboratory test [Unknown]
  - Weight decreased [Unknown]
  - Osteitis [Unknown]
  - Paraesthesia [Unknown]
  - Colonoscopy [Unknown]
